FAERS Safety Report 20125330 (Version 2)
Quarter: 2021Q4

REPORT INFORMATION
  Report Type: Report from Study
  Country: CA (occurrence: CA)
  Receive Date: 20211129
  Receipt Date: 20211129
  Transmission Date: 20220303
  Serious: Yes (Hospitalization, Other)
  Sender: FDA-Public Use
  Company Number: CA-HLS-202108811

PATIENT
  Age: 73 Year
  Sex: Female

DRUGS (2)
  1. CLOZARIL [Suspect]
     Active Substance: CLOZAPINE
     Indication: Product used for unknown indication
     Route: 048
     Dates: start: 20151110
  2. RISPERIDONE [Concomitant]
     Active Substance: RISPERIDONE
     Indication: Product used for unknown indication
     Route: 065

REACTIONS (8)
  - Confusional state [Unknown]
  - Faecaloma [Unknown]
  - Asthenia [Unknown]
  - General physical health deterioration [Unknown]
  - Quality of life decreased [Unknown]
  - Seizure [Recovered/Resolved]
  - Urinary incontinence [Unknown]
  - Wheelchair user [Unknown]

NARRATIVE: CASE EVENT DATE: 20210601
